FAERS Safety Report 4368614-5 (Version None)
Quarter: 2004Q2

REPORT INFORMATION
  Report Type: 
  Country: None (occurrence: None)
  Receive Date: 20040528
  Receipt Date: 20040516
  Transmission Date: 20050107
  Serious: Yes (Hospitalization, Other)
  Sender: FDA-Public Use
  Company Number: 236640

PATIENT
  Sex: Female
  Weight: 3.4 kg

DRUGS (6)
  1. NOVORAPID PENFILL 3 ML(NOVORAPID PENFILL 3 ML (INSULIN ASPART) SOLUTI [Suspect]
     Indication: DIABETES MELLITUS INSULIN-DEPENDENT
     Dosage: 56 IU, QD, INTRAUTERINE
     Route: 015
     Dates: start: 20030827
  2. PROTAPHANE PENFILL HM(GE) (INSULIN HUMAN) SUSPENSION FOR INJECTION [Concomitant]
  3. BUPIVACAINE [Concomitant]
  4. FENTANYL [Concomitant]
  5. IRON (IRON) [Concomitant]
  6. PITOCIN    /AUT/(OXYTOCIN CITRATE) [Concomitant]

REACTIONS (2)
  - HYPOGLYCAEMIA NEONATAL [None]
  - MATERNAL DRUGS AFFECTING FOETUS [None]
